FAERS Safety Report 24278282 (Version 1)
Quarter: 2024Q3

REPORT INFORMATION
  Report Type: Report from Study
  Country: TW (occurrence: TW)
  Receive Date: 20240903
  Receipt Date: 20240903
  Transmission Date: 20241017
  Serious: Yes (Hospitalization)
  Sender: UCB
  Company Number: TW-UCBSA-2024042533

PATIENT
  Age: 71 Year
  Sex: Male

DRUGS (2)
  1. CIMZIA [Suspect]
     Active Substance: CERTOLIZUMAB PEGOL
     Indication: Rheumatoid arthritis
     Dosage: LOADING DOSE 400 MILLIGRAM, EV 2 WEEKS(QOW)
     Route: 058
     Dates: start: 20240415, end: 20240513
  2. CIMZIA [Suspect]
     Active Substance: CERTOLIZUMAB PEGOL
     Dosage: MAINTENANCE DOSE 400 MILLIGRAM, EV 4 WEEKS
     Route: 058
     Dates: start: 20240610, end: 20240816

REACTIONS (5)
  - Impaired healing [Recovering/Resolving]
  - Inflammatory marker increased [Recovering/Resolving]
  - Pustule [Recovering/Resolving]
  - Postoperative wound complication [Recovering/Resolving]
  - Debridement [Recovering/Resolving]

NARRATIVE: CASE EVENT DATE: 20240801
